FAERS Safety Report 7641824-7 (Version None)
Quarter: 2011Q3

REPORT INFORMATION
  Report Type: 
  Country: None (occurrence: None)
  Receive Date: 20110728
  Receipt Date: 20110721
  Transmission Date: 20111222
  Serious: Yes (Hospitalization, Other)
  Sender: FDA-Public Use
  Company Number: US-JNJFOC-20100805883

PATIENT
  Sex: Female

DRUGS (3)
  1. LEVAQUIN [Suspect]
     Indication: URINARY TRACT INFECTION
     Route: 048
     Dates: start: 20080101, end: 20080114
  2. CIPROFLOXACIN HCL [Suspect]
     Indication: ILL-DEFINED DISORDER
     Route: 065
  3. LEVAQUIN [Suspect]
     Indication: KIDNEY INFECTION
     Route: 048
     Dates: start: 20080101, end: 20080114

REACTIONS (5)
  - JOINT INJURY [None]
  - TENDON RUPTURE [None]
  - LIMB INJURY [None]
  - TENDON INJURY [None]
  - TENDONITIS [None]
